FAERS Safety Report 10037948 (Version 1)
Quarter: 2014Q1

REPORT INFORMATION
  Report Type: Report from Study
  Country: JP (occurrence: JP)
  Receive Date: 20140326
  Receipt Date: 20140326
  Transmission Date: 20141002
  Serious: Yes (Death, Other)
  Sender: FDA-Public Use
  Company Number: JP-SA-2014SA037261

PATIENT
  Age: 76 Year
  Sex: Female

DRUGS (2)
  1. CARBOPLATIN [Suspect]
     Indication: NON-SMALL CELL LUNG CANCER
     Dosage: AREA UNDER THE CURVE (AUC) 6MG/ML MIN OVER THE COURSE OF THREE HOURS ON DAY 1 EVERY 21 DAYS.
     Route: 042
  2. DOCETAXEL [Suspect]
     Indication: NON-SMALL CELL LUNG CANCER
     Dosage: OVER THE COURSE OF 60 TO 90 MIN.
     Route: 042

REACTIONS (3)
  - Acute respiratory distress syndrome [Unknown]
  - Respiratory failure [Fatal]
  - Acute myocardial infarction [Fatal]
